FAERS Safety Report 6738723-1 (Version None)
Quarter: 2010Q2

REPORT INFORMATION
  Report Type: 
  Country: None (occurrence: None)
  Receive Date: 20100524
  Receipt Date: 20100512
  Transmission Date: 20101027
  Serious: Yes (Death, Life-Threatening)
  Sender: FDA-Public Use
  Company Number: FR-PFIZER INC-2006052908

PATIENT
  Age: 59 Year
  Sex: Female
  Weight: 72 kg

DRUGS (7)
  1. DOSTINEX [Suspect]
     Indication: PROLACTINOMA
     Dosage: 1 MG, WEEKLY
     Route: 048
     Dates: start: 20051209, end: 20060218
  2. TROSPIUM CHLORIDE [Concomitant]
     Dosage: 40 MG/DAY
     Route: 065
  3. TRIATEC [Concomitant]
     Indication: HYPERTENSION
     Dosage: 10 MG/DAY
     Route: 065
  4. TAHOR [Concomitant]
     Indication: HYPERCHOLESTEROLAEMIA
     Dosage: 20 MG/DAY
     Route: 048
  5. CALCIUM ^SANDOZ^ [Concomitant]
     Route: 065
  6. DEDROGYL [Concomitant]
     Route: 065
  7. HEXAQUINE [Concomitant]
     Route: 065

REACTIONS (2)
  - GASTROINTESTINAL NECROSIS [None]
  - NECROSIS ISCHAEMIC [None]
